FAERS Safety Report 5321282-8 (Version None)
Quarter: 2007Q2

REPORT INFORMATION
  Report Type: 
  Country: None (occurrence: None)
  Receive Date: 20070507
  Receipt Date: 20070507
  Transmission Date: 20071010
  Serious: Yes (Disabling)
  Sender: FDA-Public Use
  Company Number: None

PATIENT
  Age: 54 Year
  Sex: Female
  Weight: 52.1637 kg

DRUGS (1)
  1. CIPROFLOXACIN [Suspect]
     Indication: URINARY TRACT INFECTION
     Dosage: 1 TAB 2X/DAY PO
     Route: 048
     Dates: start: 20070413, end: 20070416

REACTIONS (7)
  - ARTHRALGIA [None]
  - FEELING ABNORMAL [None]
  - FEELING HOT AND COLD [None]
  - MUSCLE STRAIN [None]
  - MYALGIA [None]
  - NEUROPATHY PERIPHERAL [None]
  - PARAESTHESIA [None]
